FAERS Safety Report 7255156-2 (Version None)
Quarter: 2011Q1

REPORT INFORMATION
  Report Type: 
  Country: None (occurrence: None)
  Receive Date: 20110129
  Receipt Date: 20100202
  Transmission Date: 20110831
  Serious: No
  Sender: FDA-Public Use
  Company Number: US-ABBOTT-10P-163-0624261-00

PATIENT
  Sex: Female

DRUGS (1)
  1. HUMIRA [Suspect]
     Indication: PRODUCT USED FOR UNKNOWN INDICATION
     Dosage: LOT NUMBER IS FROM LAST 3 MONTH SUPPLY THAT WAS SENT OUT TO THE PATIENT.
     Route: 058
     Dates: start: 20090301

REACTIONS (5)
  - HEART RATE INCREASED [None]
  - PARAESTHESIA ORAL [None]
  - TREMOR [None]
  - HYPOAESTHESIA [None]
  - HYPOAESTHESIA ORAL [None]
